FAERS Safety Report 15130439 (Version 1)
Quarter: 2018Q3

REPORT INFORMATION
  Report Type: Report from Study
  Country: None (occurrence: US)
  Receive Date: 20180711
  Receipt Date: 20180711
  Transmission Date: 20181010
  Serious: Yes (Other)
  Sender: FDA-Public Use
  Company Number: US-BAUSCH-BL-2018-018770

PATIENT
  Age: 44 Year
  Sex: Male

DRUGS (3)
  1. CUPRIMINE [Suspect]
     Active Substance: PENICILLAMINE
     Indication: HEPATO-LENTICULAR DEGENERATION
     Dosage: 250 MG CAPSULES, 4 CAPSULES BY MOUTH ONCE DAILY
     Route: 048
     Dates: start: 1999
  2. LORAZEPAM. [Concomitant]
     Active Substance: LORAZEPAM
     Indication: PRODUCT USED FOR UNKNOWN INDICATION
     Dosage: 2 MG, AS NEEDED
     Route: 048
  3. PREVACID [Concomitant]
     Active Substance: LANSOPRAZOLE
     Indication: PRODUCT USED FOR UNKNOWN INDICATION
     Route: 048

REACTIONS (4)
  - Ammonia increased [Unknown]
  - Liver disorder [Unknown]
  - Weight fluctuation [Unknown]
  - Urine copper increased [Unknown]

NARRATIVE: CASE EVENT DATE: 201806
